FAERS Safety Report 24993672 (Version 1)
Quarter: 2025Q1

REPORT INFORMATION
  Report Type: Spontaneous
  Country: US (occurrence: US)
  Receive Date: 20250221
  Receipt Date: 20250221
  Transmission Date: 20250409
  Serious: No
  Sender: ROCHE
  Company Number: US-ROCHE-10000191357

PATIENT
  Age: 82 Year
  Sex: Female

DRUGS (8)
  1. ERIVEDGE [Suspect]
     Active Substance: VISMODEGIB
     Indication: Basal cell carcinoma
     Route: 048
     Dates: start: 20250118
  2. ERIVEDGE [Suspect]
     Active Substance: VISMODEGIB
     Indication: Basal cell carcinoma
     Route: 048
  3. ACETYL L-CAR [Concomitant]
  4. ATORVASTATIN CALCIUM [Concomitant]
     Active Substance: ATORVASTATIN CALCIUM
  5. CARVEDILOL [Concomitant]
     Active Substance: CARVEDILOL
  6. FUROSEMIDE [Concomitant]
     Active Substance: FUROSEMIDE
  7. SERTRALINE H [Concomitant]
  8. XARELTO [Concomitant]
     Active Substance: RIVAROXABAN

REACTIONS (6)
  - Haemorrhage [Unknown]
  - General physical health deterioration [Not Recovered/Not Resolved]
  - Fatigue [Unknown]
  - Mental impairment [Unknown]
  - Abdominal pain upper [Unknown]
  - Dysgeusia [Unknown]

NARRATIVE: CASE EVENT DATE: 20250119
